FAERS Safety Report 5095642-7 (Version None)
Quarter: 2006Q3

REPORT INFORMATION
  Report Type: 
  Country: None (occurrence: None)
  Receive Date: 20060731
  Receipt Date: 20060426
  Transmission Date: 20061208
  Serious: No
  Sender: FDA-Public Use
  Company Number: 2006PV012803

PATIENT
  Age: 57 Year
  Sex: Female
  Weight: 231.3345 kg

DRUGS (3)
  1. BYETTA [Suspect]
     Indication: DIABETES MELLITUS NON-INSULIN-DEPENDENT
     Dosage: SEE IMAGE
     Route: 058
     Dates: start: 20051101, end: 20051201
  2. BYETTA [Suspect]
     Indication: DIABETES MELLITUS NON-INSULIN-DEPENDENT
     Dosage: SEE IMAGE
     Route: 058
     Dates: start: 20051201
  3. PRANDIN [Concomitant]

REACTIONS (5)
  - BACTERIA URINE IDENTIFIED [None]
  - BLADDER PAIN [None]
  - BLADDER SPASM [None]
  - BLOOD GLUCOSE DECREASED [None]
  - DYSURIA [None]
